FAERS Safety Report 9724850 (Version 3)
Quarter: 2013Q4

REPORT INFORMATION
  Report Type: Report from Study
  Country: VE (occurrence: VE)
  Receive Date: 20131202
  Receipt Date: 20131206
  Transmission Date: 20140711
  Serious: Yes (Other)
  Sender: FDA-Public Use
  Company Number: VE-ABBVIE-13P-178-1034065-00

PATIENT
  Sex: Female
  Weight: 63 kg

DRUGS (2)
  1. HUMIRA [Suspect]
     Indication: RHEUMATOID ARTHRITIS
     Route: 058
     Dates: start: 200903, end: 200906
  2. METHOTREXATE [Concomitant]
     Indication: RHEUMATOID ARTHRITIS

REACTIONS (6)
  - Intervertebral disc compression [Unknown]
  - Weight decreased [Recovered/Resolved]
  - Epistaxis [Not Recovered/Not Resolved]
  - Blister [Recovered/Resolved]
  - Impaired healing [Not Recovered/Not Resolved]
  - Oral mucosal blistering [Recovered/Resolved with Sequelae]
